FAERS Safety Report 7001329-3 (Version None)
Quarter: 2010Q3

REPORT INFORMATION
  Report Type: 
  Country: None (occurrence: None)
  Receive Date: 20100920
  Receipt Date: 20100422
  Transmission Date: 20110219
  Serious: No
  Sender: FDA-Public Use
  Company Number: US-ASTRAZENECA-2010SE18068

PATIENT
  Sex: Male

DRUGS (1)
  1. SEROQUEL [Suspect]
     Indication: ABNORMAL SLEEP-RELATED EVENT
     Route: 048
     Dates: start: 20060101

REACTIONS (4)
  - ANAEMIA [None]
  - ASTHENIA [None]
  - SELF-MEDICATION [None]
  - UNDERWEIGHT [None]
